FAERS Safety Report 4534205-6 (Version None)
Quarter: 2004Q4

REPORT INFORMATION
  Report Type: 
  Country: None (occurrence: None)
  Receive Date: 20041222
  Receipt Date: 20040422
  Transmission Date: 20050328
  Serious: Yes (Hospitalization)
  Sender: FDA-Public Use
  Company Number: JP-SOLVAY-00304001145

PATIENT
  Age: 21341 Day
  Sex: Male
  Weight: 39 kg

DRUGS (8)
  1. TOUGHMAC E [Concomitant]
     Indication: EPIGASTRIC DISCOMFORT
     Dosage: DAILY DOSE: 3 DF. FREQUENCY:UNKNOWN
     Route: 048
     Dates: start: 19970711, end: 19980224
  2. CREON [Suspect]
     Indication: MALIGNANT NEOPLASM OF AMPULLA OF VATER
     Dosage: DAILY DOSE: 3 G. FREQUENCY:UNKNOWN
     Route: 048
     Dates: start: 19970711, end: 19980709
  3. ALUMINUM HYDROXIDE AND MAGNESIUM TRISILICATE [Concomitant]
     Indication: ABDOMINAL PAIN UPPER
     Dosage: DAILY DOSE: 45 ML. FREQUENCY:UNKNOWN
     Route: 048
     Dates: start: 19970723, end: 19970901
  4. HUMULIN N [Concomitant]
     Indication: DIABETES MELLITUS
     Dosage: DAILY DOSE: 9 INTERNATIONAL UNIT(S)
     Route: 042
     Dates: start: 19970711, end: 19980709
  5. HUMULIN R [Concomitant]
     Indication: DIABETES MELLITUS
     Dosage: DAILY DOSE: 2 IU. FREQUENCY:UNKNOWN
     Route: 042
     Dates: start: 19970711, end: 19980709
  6. LASIX [Concomitant]
     Indication: OEDEMA
     Dosage: DAILY DOSE: 1 DF. FREQUENCY:UNKNOWN
     Route: 048
     Dates: start: 19970930, end: 19971125
  7. LOPEMIN [Concomitant]
     Indication: DIARRHOEA
     Dosage: DAILY DOSE: 1 DF. FREQUENCY:UNKNOWN
     Route: 048
     Dates: start: 19970930, end: 19980709
  8. CEFOTIAM HYDROCHLORIDE [Concomitant]
     Indication: INFECTION PROPHYLAXIS
     Dosage: DAILY DOSE: 2 G. FREQUENCY:UNKNOWN
     Route: 042
     Dates: start: 19980116, end: 19980118

REACTIONS (8)
  - ANAEMIA [None]
  - ASPARTATE AMINOTRANSFERASE INCREASED [None]
  - BLOOD AMYLASE DECREASED [None]
  - BLOOD LACTATE DEHYDROGENASE DECREASED [None]
  - GAMMA-GLUTAMYLTRANSFERASE INCREASED [None]
  - HYPOTENSION [None]
  - PANCREATIC CARCINOMA RECURRENT [None]
  - WHITE BLOOD CELL COUNT INCREASED [None]
